FAERS Safety Report 5121096-8 (Version None)
Quarter: 2006Q4

REPORT INFORMATION
  Report Type: 
  Country: None (occurrence: None)
  Receive Date: 20061005
  Receipt Date: 20060919
  Transmission Date: 20070319
  Serious: Yes (Hospitalization)
  Sender: FDA-Public Use
  Company Number: 2006AP04335

PATIENT
  Age: 20076 Day
  Sex: Female
  Weight: 52 kg

DRUGS (1)
  1. IRESSA [Suspect]
     Indication: NON-SMALL CELL LUNG CANCER
     Route: 048
     Dates: start: 20060426

REACTIONS (6)
  - ADENOCARCINOMA [None]
  - CARDIOMEGALY [None]
  - COUGH [None]
  - DYSPNOEA [None]
  - DYSPNOEA EXERTIONAL [None]
  - PERICARDIAL EFFUSION [None]
